FAERS Safety Report 6771068-2 (Version None)
Quarter: 2010Q2

REPORT INFORMATION
  Report Type: 
  Country: None (occurrence: None)
  Receive Date: 20100616
  Receipt Date: 20100608
  Transmission Date: 20101027
  Serious: Yes (Hospitalization)
  Sender: FDA-Public Use
  Company Number: US-CELGENEUS-163-21880-10060905

PATIENT
  Sex: Male

DRUGS (4)
  1. REVLIMID [Suspect]
     Route: 048
     Dates: start: 20100601
  2. REVLIMID [Suspect]
     Route: 048
     Dates: start: 20091201, end: 20100401
  3. REVLIMID [Suspect]
     Route: 048
     Dates: start: 20090501, end: 20090701
  4. REVLIMID [Suspect]
     Route: 048
     Dates: start: 20071201, end: 20080301

REACTIONS (1)
  - INCOHERENT [None]
